FAERS Safety Report 7796149-6 (Version None)
Quarter: 2011Q4

REPORT INFORMATION
  Report Type: 
  Country: None (occurrence: None)
  Receive Date: 20111004
  Receipt Date: 20110929
  Transmission Date: 20120403
  Serious: Yes (Hospitalization)
  Sender: FDA-Public Use
  Company Number: PHEH2011US05610

PATIENT
  Age: 66 Year
  Sex: Female
  Weight: 51.247 kg

DRUGS (1)
  1. TOBI [Suspect]
     Dosage: 300 MG, TWICE A DAY VIA NEBULIZER IN A CYCLE OF 28 DAYS ON AND 28 DAYS OFF
     Dates: start: 20080819

REACTIONS (1)
  - RESPIRATORY TRACT INFECTION [None]
